FAERS Safety Report 17146558 (Version 2)
Quarter: 2019Q4

REPORT INFORMATION
  Report Type: Report from Study
  Country: US (occurrence: US)
  Receive Date: 20191212
  Receipt Date: 20191218
  Transmission Date: 20200122
  Serious: No
  Sender: FDA-Public Use
  Company Number: NVSC2019US067436

PATIENT
  Sex: Male

DRUGS (1)
  1. ENTRESTO [Suspect]
     Active Substance: SACUBITRIL\VALSARTAN
     Indication: PRODUCT USED FOR UNKNOWN INDICATION
     Dosage: 1 DF24 MG OF SACUBITRIL AND 26 MG OF VALSARTAN), BID
     Route: 048

REACTIONS (3)
  - Chest pain [Unknown]
  - Feeling abnormal [Unknown]
  - Chest discomfort [Unknown]
